FAERS Safety Report 9026163 (Version 1)
Quarter: 2012Q4

REPORT INFORMATION
  Report Type: Spontaneous
  Country: US (occurrence: None)
  Receive Date: 20121213
  Receipt Date: 20121213
  Transmission Date: 20130627
  Serious: Yes (Life-Threatening)
  Sender: FDA-Public Use
  Company Number: None

PATIENT
  Age: 55 Year
  Sex: Female

DRUGS (1)
  1. WARFARIN [Suspect]
     Dosage: 10 MG PO QHS
     Route: 048
     Dates: end: 20120729

REACTIONS (3)
  - International normalised ratio increased [None]
  - Skin ulcer haemorrhage [None]
  - Skin ulcer [None]
